FAERS Safety Report 9208081 (Version 1)
Quarter: 2013Q2

REPORT INFORMATION
  Report Type: Spontaneous
  Country: NL (occurrence: NL)
  Receive Date: 20130403
  Receipt Date: 20130403
  Transmission Date: 20140414
  Serious: Yes (Hospitalization)
  Sender: FDA-Public Use
  Company Number: NL-TEVA-395016ISR

PATIENT
  Age: 53 Year
  Sex: Female

DRUGS (5)
  1. VENLAFAXINE [Suspect]
     Indication: OVERDOSE
     Route: 065
  2. VENLAFAXINE [Suspect]
     Indication: DEPRESSION
     Route: 065
  3. CITALOPRAM [Suspect]
     Indication: OVERDOSE
     Route: 065
  4. AMITRIPTYLINE [Suspect]
     Indication: OVERDOSE
     Route: 065
  5. LORAZEPAM [Suspect]
     Indication: DEPRESSION
     Route: 065

REACTIONS (5)
  - Haemodynamic instability [Recovering/Resolving]
  - Depressed level of consciousness [Recovering/Resolving]
  - Overdose [Recovering/Resolving]
  - Respiratory acidosis [Recovering/Resolving]
  - Toxicity to various agents [Recovering/Resolving]
